FAERS Safety Report 5887781-5 (Version None)
Quarter: 2008Q3

REPORT INFORMATION
  Report Type: 
  Country: None (occurrence: None)
  Receive Date: 20080916
  Receipt Date: 20080225
  Transmission Date: 20090109
  Serious: Yes (Other)
  Sender: FDA-Public Use
  Company Number: 2007US002928

PATIENT
  Age: 32 Year
  Sex: Male

DRUGS (2)
  1. PROGRAF [Suspect]
     Indication: HEART TRANSPLANT
     Dosage: ORAL
     Route: 048
  2. CELLCEPT [Concomitant]

REACTIONS (2)
  - ALPHA 1 FOETOPROTEIN INCREASED [None]
  - TESTIS CANCER [None]
